FAERS Safety Report 17421197 (Version 2)
Quarter: 2021Q4

REPORT INFORMATION
  Report Type: Spontaneous
  Country: SE (occurrence: SE)
  Receive Date: 20200214
  Receipt Date: 20211008
  Transmission Date: 20220303
  Serious: Yes (Other)
  Sender: FDA-Public Use
  Company Number: SE-PFIZER INC-2020038906

PATIENT
  Age: 68 Year
  Sex: Male
  Weight: 54 kg

DRUGS (8)
  1. PREDNISOLONE [Suspect]
     Active Substance: PREDNISOLONE
     Indication: Giant cell arteritis
     Route: 065
     Dates: end: 2017
  2. PREDNISOLONE [Suspect]
     Active Substance: PREDNISOLONE
     Route: 065
  3. PREDNISOLONE [Suspect]
     Active Substance: PREDNISOLONE
     Dosage: RAISED DOSE TO 2.5 MG
     Route: 065
     Dates: start: 202102
  4. PREDNISOLONE [Suspect]
     Active Substance: PREDNISOLONE
     Dosage: LOWERED DOSE BY 1.25 MG, CONTINUED BY LOWERING BY 1.25 MG EVERY FOURTH WEEK
     Route: 065
     Dates: start: 2020
  5. PREDNISOLONE [Suspect]
     Active Substance: PREDNISOLONE
     Dosage: RAISED DOSE TO 3.75 MG
     Route: 065
     Dates: start: 2021
  6. PREDNISOLONE [Suspect]
     Active Substance: PREDNISOLONE
     Dosage: 5 MG, THEN LOWERED BY 0.625 MG EVERY FOURTH WEEK UNTIL REACHING 0 MG
     Route: 065
     Dates: start: 2020
  7. PREDNISOLONE [Suspect]
     Active Substance: PREDNISOLONE
     Indication: Giant cell arteritis
     Route: 065
     Dates: start: 2014
  8. TOCILIZUMAB [Concomitant]
     Active Substance: TOCILIZUMAB
     Indication: Product used for unknown indication
     Route: 065

REACTIONS (16)
  - Steroid withdrawal syndrome [Unknown]
  - Polymyalgia rheumatica [Not Recovered/Not Resolved]
  - Visual impairment [Unknown]
  - Head discomfort [Not Recovered/Not Resolved]
  - Hypoaesthesia [Unknown]
  - Oropharyngeal pain [Unknown]
  - Myalgia [Unknown]
  - Toothache [Unknown]
  - Arthralgia [Unknown]
  - Infection [Unknown]
  - Asthenia [Not Recovered/Not Resolved]
  - Fatigue [Not Recovered/Not Resolved]
  - Visual impairment [Unknown]
  - Poor quality sleep [Not Recovered/Not Resolved]
  - Condition aggravated [Unknown]
  - Malaise [Not Recovered/Not Resolved]

NARRATIVE: CASE EVENT DATE: 20140101
